FAERS Safety Report 23346413 (Version 1)
Quarter: 2023Q4

REPORT INFORMATION
  Report Type: Spontaneous
  Country: FR (occurrence: FR)
  Receive Date: 20231228
  Receipt Date: 20231228
  Transmission Date: 20240110
  Serious: Yes (Hospitalization, Other)
  Sender: FDA-Public Use
  Company Number: None

PATIENT
  Age: 52 Year
  Sex: Male
  Weight: 97 kg

DRUGS (9)
  1. TEMOZOLOMIDE [Suspect]
     Active Substance: TEMOZOLOMIDE
     Indication: Glioma
     Dosage: PENDANT LA RT-CT (42 JOURS)
     Route: 048
     Dates: start: 20190506, end: 20190617
  2. TEMOZOLOMIDE [Suspect]
     Active Substance: TEMOZOLOMIDE
     Dosage: 400 MG/DAY FOR 5 DAYS PER MONTH; 16 CYCLES IN TOTAL
     Route: 048
     Dates: start: 201702, end: 201805
  3. TEMOZOLOMIDE [Suspect]
     Active Substance: TEMOZOLOMIDE
     Dosage: 400 MG/DAY FOR 5 DAYS PER MONTH; 13 CYCLES IN TOTAL
     Route: 048
     Dates: start: 20120604, end: 2013
  4. VINCRISTINE [Suspect]
     Active Substance: VINCRISTINE
     Indication: Glioma
     Dosage: ON D8 AND D29 FOR 7 MONTHS
     Route: 040
     Dates: start: 20181025, end: 201904
  5. LOMUSTINE [Suspect]
     Active Substance: LOMUSTINE
     Indication: Glioma
     Dosage: ON D1 FOR 7 MONTHS
     Route: 048
     Dates: start: 20181025, end: 201904
  6. PROCARBAZINE HYDROCHLORIDE [Suspect]
     Active Substance: PROCARBAZINE HYDROCHLORIDE
     Indication: Glioma
     Dosage: 100 MG/DAY FROM D8 TO D21 FOR 7 MONTHS
     Route: 048
     Dates: start: 20181025, end: 201904
  7. BEVACIZUMAB [Suspect]
     Active Substance: BEVACIZUMAB
     Indication: Glioma
     Dosage: 800 MILLIGRAM, 1DOSE/2 WEEKS
     Route: 040
     Dates: start: 20191031, end: 20191216
  8. BEVACIZUMAB [Suspect]
     Active Substance: BEVACIZUMAB
     Dosage: 800 MILLIGRAM, 1 DOSE/3 WEEKS
     Route: 065
     Dates: start: 20191216, end: 20200416
  9. BEVACIZUMAB [Suspect]
     Active Substance: BEVACIZUMAB
     Dosage: 800 MILLIGRAM, 1DOSE/4WEEKS
     Route: 065
     Dates: start: 20200514, end: 202103

REACTIONS (1)
  - Myxoid liposarcoma [Recovered/Resolved]

NARRATIVE: CASE EVENT DATE: 20210325
